FAERS Safety Report 6755687-5 (Version None)
Quarter: 2010Q2

REPORT INFORMATION
  Report Type: 
  Country: None (occurrence: None)
  Receive Date: 20100604
  Receipt Date: 20100531
  Transmission Date: 20101027
  Serious: Yes (Death)
  Sender: FDA-Public Use
  Company Number: CA-ASTRAZENECA-2010SE25039

PATIENT
  Age: 75 Year
  Sex: Female

DRUGS (12)
  1. LOSEC I.V. [Suspect]
     Route: 048
  2. ALENDRONATE SODIUM [Suspect]
     Route: 048
  3. COMBIVENT [Suspect]
  4. LIPITOR [Suspect]
     Route: 048
  5. LASIX [Suspect]
     Route: 065
  6. METFORMIN [Suspect]
     Route: 048
  7. NITRAZADON [Suspect]
     Route: 048
  8. PLAQUENIL [Suspect]
     Route: 048
  9. PREDNISONE [Suspect]
     Route: 065
  10. SEREVENT [Suspect]
     Route: 065
  11. TYLENOL [Suspect]
     Route: 065
  12. FLOVENT [Suspect]
     Route: 065

REACTIONS (1)
  - CHEST DISCOMFORT [None]
